FAERS Safety Report 17650971 (Version 3)
Quarter: 2020Q3

REPORT INFORMATION
  Report Type: Report from Study
  Country: CA (occurrence: CA)
  Receive Date: 20200409
  Receipt Date: 20200706
  Transmission Date: 20201102
  Serious: Yes (Other)
  Sender: FDA-Public Use
  Company Number: CA-JNJFOC-20200342145

PATIENT
  Age: 20 Year
  Sex: Female
  Weight: 47.81 kg

DRUGS (2)
  1. STELARA [Suspect]
     Active Substance: USTEKINUMAB
     Route: 042
  2. STELARA [Suspect]
     Active Substance: USTEKINUMAB
     Indication: CROHN^S DISEASE
     Route: 058
     Dates: start: 20200326

REACTIONS (5)
  - Diarrhoea haemorrhagic [Recovered/Resolved]
  - Throat irritation [Unknown]
  - Infusion related reaction [Not Recovered/Not Resolved]
  - Fatigue [Unknown]
  - Nodule [Unknown]

NARRATIVE: CASE EVENT DATE: 20200326
